FAERS Safety Report 7845772-9 (Version None)
Quarter: 2011Q4

REPORT INFORMATION
  Report Type: 
  Country: None (occurrence: None)
  Receive Date: 20111025
  Receipt Date: 20111019
  Transmission Date: 20120403
  Serious: Yes (Hospitalization, Other)
  Sender: FDA-Public Use
  Company Number: JP-PFIZER INC-2011189756

PATIENT
  Age: 39 Year
  Sex: Female
  Weight: 61.6 kg

DRUGS (2)
  1. AZULFIDINE [Suspect]
     Dosage: 2 G PER DAY
     Route: 048
     Dates: end: 20110803
  2. AZULFIDINE [Suspect]
     Indication: RHEUMATOID ARTHRITIS
     Dosage: 1 G PER DAY
     Route: 048

REACTIONS (1)
  - DRUG RASH WITH EOSINOPHILIA AND SYSTEMIC SYMPTOMS [None]
